FAERS Safety Report 7221531-5 (Version None)
Quarter: 2011Q1

REPORT INFORMATION
  Report Type: 
  Country: None (occurrence: None)
  Receive Date: 20110112
  Receipt Date: 20110111
  Transmission Date: 20110831
  Serious: Yes (Death)
  Sender: FDA-Public Use
  Company Number: JP-ABBOTT-10P-087-0690677-00

PATIENT
  Age: 77 Year
  Sex: Male

DRUGS (9)
  1. FLUTAMIDE [Concomitant]
     Indication: PROSTATE CANCER STAGE IV
     Route: 048
     Dates: end: 20091218
  2. LEUPLIN SR FOR INJECTION 11.25 MG [Suspect]
     Indication: PROSTATE CANCER STAGE IV
     Route: 058
     Dates: start: 20071023, end: 20081209
  3. GASTER D [Concomitant]
     Indication: GASTRITIS PROPHYLAXIS
     Route: 048
     Dates: end: 20091215
  4. MS CONTIN [Concomitant]
     Indication: METASTASES TO BONE
     Dates: end: 20091215
  5. BICALUTAMIDE [Concomitant]
     Indication: PROSTATE CANCER STAGE IV
     Route: 048
     Dates: end: 20080115
  6. LEUPLIN SR FOR INJECTION 11.25 MG [Suspect]
     Route: 058
     Dates: start: 20090512, end: 20090818
  7. UBRETID [Concomitant]
     Indication: NEUROGENIC BLADDER
     Route: 048
  8. HYPEN [Concomitant]
     Indication: METASTASES TO BONE
     Route: 048
     Dates: end: 20090128
  9. GLYCYRON [Concomitant]
     Indication: LIVER DISORDER
     Route: 048
     Dates: end: 20091215

REACTIONS (1)
  - PROSTATE CANCER STAGE IV [None]
